FAERS Safety Report 11006069 (Version 2)
Quarter: 2015Q2

REPORT INFORMATION
  Report Type: Spontaneous
  Country: RO (occurrence: RO)
  Receive Date: 20150409
  Receipt Date: 20150410
  Transmission Date: 20150821
  Serious: Yes (Other)
  Sender: FDA-Public Use
  Company Number: PHHY2015RO041355

PATIENT
  Sex: Female

DRUGS (5)
  1. ETORICOXIB [Suspect]
     Active Substance: ETORICOXIB
     Dosage: 90 MG PER DAY AS A SINGLE DOSE 1 CYCLES DURING INACTIVE DISEASE
     Route: 065
  2. SALAZOPYRINE [Concomitant]
     Active Substance: SULFASALAZINE
     Indication: RHEUMATOID ARTHRITIS
     Dosage: 2 MG PER DAY
     Route: 065
  3. IBUPROFEN. [Concomitant]
     Active Substance: IBUPROFEN
     Indication: RHEUMATOID ARTHRITIS
     Dosage: 400 MG, 4 TIMES A DAY DURING INACTIVE STAGE
     Route: 065
  4. DICLOFENAC [Suspect]
     Active Substance: DICLOFENAC
     Indication: RHEUMATOID ARTHRITIS
     Dosage: 50 MG, TID, 1 CYCLE DURING INACTIVE DISEASE
     Route: 065
  5. ETORICOXIB [Suspect]
     Active Substance: ETORICOXIB
     Indication: RHEUMATOID ARTHRITIS
     Dosage: 90 MG PER DAY AS A SINGLE DOSE 2 CYCLES DURING ACTIVE DISEASE
     Route: 065

REACTIONS (1)
  - Ovulation disorder [Unknown]
